FAERS Safety Report 6531532-8 (Version None)
Quarter: 2010Q1

REPORT INFORMATION
  Report Type: 
  Country: None (occurrence: None)
  Receive Date: 20100108
  Receipt Date: 20100102
  Transmission Date: 20100710
  Serious: Yes (Hospitalization)
  Sender: FDA-Public Use
  Company Number: US-SANOFI-AVENTIS-2010SA000417

PATIENT
  Age: 85 Year
  Sex: Male

DRUGS (6)
  1. LANTUS [Suspect]
     Indication: TYPE 2 DIABETES MELLITUS
     Dosage: DOSE:15 UNIT(S)
     Route: 058
     Dates: start: 20091001
  2. SOLOSTAR [Suspect]
     Indication: TYPE 2 DIABETES MELLITUS
     Dates: start: 20091001
  3. CARVEDILOL [Concomitant]
  4. METFORMIN HCL [Concomitant]
  5. QUINAPRIL [Concomitant]
  6. PLAVIX [Concomitant]

REACTIONS (1)
  - CEREBROVASCULAR ACCIDENT [None]
